FAERS Safety Report 7250995-6 (Version None)
Quarter: 2011Q1

REPORT INFORMATION
  Report Type: 
  Country: None (occurrence: None)
  Receive Date: 20110128
  Receipt Date: 20110119
  Transmission Date: 20110831
  Serious: Yes (Other)
  Sender: FDA-Public Use
  Company Number: B0695381A

PATIENT
  Age: 54 Year
  Sex: Male

DRUGS (3)
  1. KIVEXA [Suspect]
     Indication: HIV INFECTION
     Dosage: 1UNIT PER DAY
     Route: 048
     Dates: start: 20101001
  2. KALETRA [Concomitant]
     Indication: HIV INFECTION
     Route: 065
  3. BACTRIM [Concomitant]
     Dosage: 1UNIT PER DAY
     Route: 048

REACTIONS (1)
  - RENAL FAILURE CHRONIC [None]
